FAERS Safety Report 23323529 (Version 1)
Quarter: 2023Q4

REPORT INFORMATION
  Report Type: Spontaneous
  Country: US (occurrence: None)
  Receive Date: 20231220
  Receipt Date: 20231220
  Transmission Date: 20240110
  Serious: No
  Sender: FDA-Public Use
  Company Number: US-ROCHE-3367398

PATIENT
  Sex: Female

DRUGS (17)
  1. RITUXAN [Suspect]
     Active Substance: RITUXIMAB
     Indication: Rheumatoid arthritis
     Dosage: DAY 1 AND DAY 15
     Route: 041
  2. ACYLOVIR [Concomitant]
  3. ALENDRONATE [Concomitant]
     Active Substance: ALENDRONATE SODIUM
  4. BACTRIM [Concomitant]
     Active Substance: SULFAMETHOXAZOLE\TRIMETHOPRIM
  5. BRIMONIDINE [Concomitant]
     Active Substance: BRIMONIDINE TARTRATE
  6. CYCLOBENZAPRINE [Concomitant]
     Active Substance: CYCLOBENZAPRINE
  7. DORZOLAMIDE [Concomitant]
     Active Substance: DORZOLAMIDE
  8. DULOXETINE HYDROCHLORIDE [Concomitant]
     Active Substance: DULOXETINE HYDROCHLORIDE
  9. FENTANYL [Concomitant]
     Active Substance: FENTANYL\FENTANYL CITRATE
  10. FIBER [Concomitant]
  11. FUROSEMIDE [Concomitant]
     Active Substance: FUROSEMIDE
  12. CHLOROTHIAZIDE [Concomitant]
     Active Substance: CHLOROTHIAZIDE
  13. PANTOPRAZOLE SODIUM [Concomitant]
     Active Substance: PANTOPRAZOLE SODIUM
  14. FOLIC ACID [Concomitant]
     Active Substance: FOLIC ACID
  15. PREDNISONE [Concomitant]
     Active Substance: PREDNISONE
  16. METHYLPHENIDATE HYDROCHLORIDE [Concomitant]
     Active Substance: METHYLPHENIDATE HYDROCHLORIDE
  17. FLUOXETINE HYDROCHLORIDE [Concomitant]
     Active Substance: FLUOXETINE HYDROCHLORIDE

REACTIONS (1)
  - Illness [Unknown]
